FAERS Safety Report 4395873-5 (Version None)
Quarter: 2004Q3

REPORT INFORMATION
  Report Type: 
  Country: None (occurrence: None)
  Receive Date: 20040713
  Receipt Date: 20040427
  Transmission Date: 20050211
  Serious: Yes (Other)
  Sender: FDA-Public Use
  Company Number: PHBS2004JP05720

PATIENT
  Age: 44 Year
  Sex: Female

DRUGS (4)
  1. TOFRANIL [Suspect]
     Indication: DEPRESSION
     Dosage: 175 MG/D
     Route: 048
     Dates: start: 20040402
  2. TOFRANIL [Suspect]
     Dosage: 75 MG/D
     Route: 048
     Dates: end: 20040425
  3. DEPROMEL [Suspect]
     Indication: DEPRESSION
     Dosage: 75 MG/D
     Route: 048
     Dates: start: 20040420
  4. DEPROMEL [Suspect]
     Dosage: 150 MG/D
     Route: 048
     Dates: end: 20040519

REACTIONS (2)
  - HALLUCINATION, AUDITORY [None]
  - PSYCHIATRIC SYMPTOM [None]
